FAERS Safety Report 14856019 (Version 1)
Quarter: 2018Q2

REPORT INFORMATION
  Report Type: Spontaneous
  Country: US (occurrence: US)
  Receive Date: 20180507
  Receipt Date: 20180507
  Transmission Date: 20180711
  Serious: No
  Sender: FDA-Public Use
  Company Number: US-ACTELION-A-NJ2018-170800

PATIENT
  Age: 77 Year
  Sex: Female

DRUGS (4)
  1. UPTRAVI [Suspect]
     Active Substance: SELEXIPAG
     Indication: PRODUCT USED FOR UNKNOWN INDICATION
     Dosage: 200 MCG, BID
     Route: 048
     Dates: start: 20180327
  2. ADCIRCA [Concomitant]
     Active Substance: TADALAFIL
  3. AMBRISENTAN [Suspect]
     Active Substance: AMBRISENTAN
     Indication: PRODUCT USED FOR UNKNOWN INDICATION
     Dosage: 5 MG, QD
     Route: 065
     Dates: start: 20180305
  4. XARELTO [Concomitant]
     Active Substance: RIVAROXABAN

REACTIONS (10)
  - Malaise [Unknown]
  - Rash [Unknown]
  - Pain in jaw [Unknown]
  - Headache [Unknown]
  - Feeling cold [Unknown]
  - Urticaria [Unknown]
  - Dizziness [Unknown]
  - Pollakiuria [Unknown]
  - Chest discomfort [Unknown]
  - Vomiting [Unknown]

NARRATIVE: CASE EVENT DATE: 201804
